FAERS Safety Report 5867285-6 (Version None)
Quarter: 2008Q3

REPORT INFORMATION
  Report Type: 
  Country: None (occurrence: None)
  Receive Date: 20080902
  Receipt Date: 20080822
  Transmission Date: 20090109
  Serious: Yes (Other)
  Sender: FDA-Public Use
  Company Number: DE-TEVA-176294ISR

PATIENT
  Sex: Male

DRUGS (3)
  1. CISPLATIN [Suspect]
     Indication: TESTIS CANCER
     Route: 041
  2. ETOPOSIDE [Suspect]
     Indication: TESTIS CANCER
     Route: 041
  3. BLEOMYCIN SULFATE [Suspect]
     Indication: TESTIS CANCER
     Route: 040

REACTIONS (2)
  - DEEP VEIN THROMBOSIS [None]
  - PULMONARY EMBOLISM [None]
